FAERS Safety Report 19632870 (Version 2)
Quarter: 2021Q3

REPORT INFORMATION
  Report Type: Report from Study
  Country: None (occurrence: KR)
  Receive Date: 20210730
  Receipt Date: 20210831
  Transmission Date: 20211014
  Serious: Yes (Hospitalization)
  Sender: FDA-Public Use
  Company Number: KR-ABBVIE-21K-090-4005646-00

PATIENT
  Sex: Male
  Weight: 52.7 kg

DRUGS (6)
  1. RINVOQ [Suspect]
     Active Substance: UPADACITINIB
     Indication: RHEUMATOID ARTHRITIS
     Route: 048
     Dates: start: 20210625, end: 20210715
  2. MUCOTRA [Concomitant]
     Active Substance: REBAMIPIDE
     Indication: PROPHYLAXIS
     Route: 048
     Dates: start: 20200401
  3. METHOTREXATE. [Concomitant]
     Active Substance: METHOTREXATE
     Indication: PRODUCT USED FOR UNKNOWN INDICATION
     Dates: start: 201705
  4. FOLIC ACID. [Concomitant]
     Active Substance: FOLIC ACID
     Indication: PROPHYLAXIS
     Route: 048
     Dates: start: 20171023
  5. CELECOXIB. [Concomitant]
     Active Substance: CELECOXIB
     Indication: PRODUCT USED FOR UNKNOWN INDICATION
     Dates: start: 20171110
  6. IMOTUN [Concomitant]
     Active Substance: AVOCADO\SOYBEAN OIL
     Indication: PRODUCT USED FOR UNKNOWN INDICATION
     Dates: start: 20190814

REACTIONS (1)
  - Mediastinal mass [Recovering/Resolving]

NARRATIVE: CASE EVENT DATE: 20210715
